FAERS Safety Report 26152125 (Version 2)
Quarter: 2025Q4

REPORT INFORMATION
  Report Type: Spontaneous
  Country: US (occurrence: US)
  Receive Date: 20251214
  Receipt Date: 20251221
  Transmission Date: 20260118
  Serious: Yes (Hospitalization)
  Sender: ABBVIE
  Company Number: US-ABBVIE-6589545

PATIENT
  Sex: Female

DRUGS (1)
  1. DEPAKOTE [Suspect]
     Active Substance: DIVALPROEX SODIUM
     Indication: Seizure
     Dosage: FORM STRENGTH: 250 MILLIGRAM
     Route: 048
     Dates: start: 1998

REACTIONS (6)
  - Colonoscopy [Unknown]
  - Anxiety [Not Recovered/Not Resolved]
  - Impatience [Unknown]
  - Aspiration [Unknown]
  - Endoscopy [Unknown]
  - Fatigue [Unknown]
